FAERS Safety Report 4793814-X (Version None)
Quarter: 2005Q4

REPORT INFORMATION
  Report Type: 
  Country: None (occurrence: None)
  Receive Date: 20051011
  Receipt Date: 20050927
  Transmission Date: 20060501
  Serious: Yes (Hospitalization)
  Sender: FDA-Public Use
  Company Number: US-AMGEN-US153082

PATIENT
  Age: 79 Year
  Sex: Male
  Weight: 371.4 kg

DRUGS (3)
  1. PROCRIT [Suspect]
     Indication: MYELODYSPLASTIC SYNDROME
     Route: 058
     Dates: start: 20050601
  2. PLAVIX [Concomitant]
  3. ANTIHYPERTENSIVE MEDICATION NOS [Concomitant]

REACTIONS (2)
  - ANGIOPLASTY [None]
  - PLATELET COUNT DECREASED [None]
